FAERS Safety Report 24528976 (Version 1)
Quarter: 2024Q4

REPORT INFORMATION
  Report Type: Spontaneous
  Country: DE (occurrence: DE)
  Receive Date: 20241021
  Receipt Date: 20241021
  Transmission Date: 20250114
  Serious: Yes (Other)
  Sender: NOVARTIS
  Company Number: DE-002147023-NVSC2024DE203346

PATIENT
  Age: 23 Year
  Sex: Male

DRUGS (3)
  1. ALPELISIB [Suspect]
     Active Substance: ALPELISIB
     Indication: Metastases to lung
     Dosage: UNK
     Route: 065
  2. ALPELISIB [Suspect]
     Active Substance: ALPELISIB
     Indication: PIK3CA-activated mutation
  3. ALPELISIB [Suspect]
     Active Substance: ALPELISIB
     Indication: Metastases to bone

REACTIONS (2)
  - Malignant neoplasm progression [Unknown]
  - Off label use [Unknown]
